FAERS Safety Report 8236196-3 (Version None)
Quarter: 2012Q1

REPORT INFORMATION
  Report Type: 
  Country: None (occurrence: None)
  Receive Date: 20120327
  Receipt Date: 20120322
  Transmission Date: 20120608
  Serious: No
  Sender: FDA-Public Use
  Company Number: US-BIOGENIDEC-2012BI010140

PATIENT
  Sex: Female

DRUGS (2)
  1. TYSABRI [Suspect]
     Indication: CROHN'S DISEASE
     Route: 042
     Dates: start: 20101230, end: 20110620
  2. TYSABRI [Suspect]
     Route: 042
     Dates: start: 20100118, end: 20100118

REACTIONS (1)
  - HYPERSENSITIVITY [None]
